FAERS Safety Report 5712865-1 (Version None)
Quarter: 2008Q2

REPORT INFORMATION
  Report Type: 
  Country: None (occurrence: None)
  Receive Date: 20080422
  Receipt Date: 20080418
  Transmission Date: 20081010
  Serious: Yes (Death, Other)
  Sender: FDA-Public Use
  Company Number: B0516676A

PATIENT
  Sex: Male

DRUGS (5)
  1. PAXIL [Suspect]
     Indication: DRUG USE FOR UNKNOWN INDICATION
     Route: 048
  2. LENDORMIN [Concomitant]
     Route: 048
  3. MILLISROL (JAPAN) [Concomitant]
     Route: 042
  4. LEDOLPER [Concomitant]
     Route: 048
  5. ROHYPNOL [Concomitant]
     Route: 048

REACTIONS (3)
  - DEATH [None]
  - INTENTIONAL OVERDOSE [None]
  - SUICIDE ATTEMPT [None]
